FAERS Safety Report 7958705-1 (Version None)
Quarter: 2011Q4

REPORT INFORMATION
  Report Type: 
  Country: None (occurrence: None)
  Receive Date: 20111206
  Receipt Date: 20111128
  Transmission Date: 20120403
  Serious: Yes (Other)
  Sender: FDA-Public Use
  Company Number: HU-TEVA-311236ISR

PATIENT
  Age: 35 Year
  Sex: Male

DRUGS (3)
  1. MYCOPHENOLIC ACID [Suspect]
  2. TACROLIMUS [Suspect]
  3. PREDNISOLONE [Suspect]

REACTIONS (1)
  - SLEEP APNOEA SYNDROME [None]
